FAERS Safety Report 4301852-6 (Version None)
Quarter: 2004Q1

REPORT INFORMATION
  Report Type: 
  Country: None (occurrence: None)
  Receive Date: 20040223
  Receipt Date: 20040127
  Transmission Date: 20041129
  Serious: Yes (Hospitalization)
  Sender: FDA-Public Use
  Company Number: NL-GLAXOSMITHKLINE-B0321210A

PATIENT
  Age: 70 Year
  Sex: Male

DRUGS (6)
  1. PAROXETINE HCL [Suspect]
     Indication: ANXIETY DISORDER
     Dosage: 20MG PER DAY
     Route: 065
     Dates: start: 20031218, end: 20031230
  2. METOPROLOL SUCCINATE [Concomitant]
     Dosage: 50MG PER DAY
     Dates: start: 20031209
  3. ISOSORBIDE MONONITRATE [Concomitant]
     Dosage: 50MG PER DAY
     Dates: start: 20031209
  4. CALCIUM CARBASPIRIN [Concomitant]
     Dosage: 100MG PER DAY
     Dates: start: 20031209
  5. AMLODIPINE [Concomitant]
     Dosage: 5MG PER DAY
     Dates: start: 20031209
  6. OXAZEPAM [Concomitant]
     Dosage: 60MG PER DAY
     Dates: start: 20031218

REACTIONS (5)
  - APATHY [None]
  - CONDITION AGGRAVATED [None]
  - DEPRESSION [None]
  - HYPONATRAEMIA [None]
  - SOMNOLENCE [None]
